FAERS Safety Report 6137332-5 (Version None)
Quarter: 2009Q1

REPORT INFORMATION
  Report Type: 
  Country: None (occurrence: None)
  Receive Date: 20090330
  Receipt Date: 20090325
  Transmission Date: 20090719
  Serious: Yes (Hospitalization, Other)
  Sender: FDA-Public Use
  Company Number: US-ROXANE LABORATORIES, INC.-2009-RO-00284RO

PATIENT
  Age: 75 Year
  Sex: Male

DRUGS (4)
  1. METHOTREXATE [Suspect]
     Indication: RHEUMATOID ARTHRITIS
     Route: 048
  2. HYDROXYCHLOROQUINE [Suspect]
     Indication: RHEUMATOID ARTHRITIS
     Dosage: 400MG
     Route: 048
  3. SALINE MIXED WITH EPINEPHRINE [Concomitant]
     Indication: PULMONARY HAEMORRHAGE
  4. CHEMOTHERAPY [Concomitant]
     Indication: BRONCHIOLOALVEOLAR CARCINOMA

REACTIONS (4)
  - BRONCHIOLOALVEOLAR CARCINOMA [None]
  - HAEMOPTYSIS [None]
  - PLATELET COUNT DECREASED [None]
  - PULMONARY HAEMORRHAGE [None]
